FAERS Safety Report 7691384-X (Version None)
Quarter: 2011Q3

REPORT INFORMATION
  Report Type: 
  Country: None (occurrence: None)
  Receive Date: 20110818
  Receipt Date: 20110810
  Transmission Date: 20111222
  Serious: Yes (Other)
  Sender: FDA-Public Use
  Company Number: PHHY2011TR71633

PATIENT
  Age: 36 Year
  Sex: Female

DRUGS (1)
  1. AFINITOR [Suspect]
     Indication: NEOPLASM
     Dosage: UNK UKN, UNK
     Dates: start: 20110701

REACTIONS (2)
  - INTESTINAL ISCHAEMIA [None]
  - GASTROINTESTINAL DISORDER [None]
